FAERS Safety Report 7205812-7 (Version None)
Quarter: 2010Q4

REPORT INFORMATION
  Report Type: 
  Country: None (occurrence: None)
  Receive Date: 20101231
  Receipt Date: 20101221
  Transmission Date: 20110411
  Serious: Yes (Other)
  Sender: FDA-Public Use
  Company Number: US-MERCK-1012USA03428

PATIENT
  Sex: Female

DRUGS (1)
  1. FOSAMAX [Suspect]
     Route: 048

REACTIONS (5)
  - BONE DENSITY DECREASED [None]
  - DIARRHOEA [None]
  - FEMUR FRACTURE [None]
  - GAIT DISTURBANCE [None]
  - MACULAR DEGENERATION [None]
